FAERS Safety Report 16969817 (Version 1)
Quarter: 2019Q4

REPORT INFORMATION
  Report Type: Spontaneous
  Country: US (occurrence: US)
  Receive Date: 20190911
  Receipt Date: 20190911
  Transmission Date: 20200122
  Serious: No
  Sender: FDA-Public Use
  Company Number: None

PATIENT
  Age: 75 Year
  Sex: Female
  Weight: 82.55 kg

DRUGS (9)
  1. ALBUTEROL. [Concomitant]
     Active Substance: ALBUTEROL
  2. NORTRIPTYLINE CAP 50MG GENERIC FOR PAMELOR CAP 50MG MFG TRAO [Suspect]
     Active Substance: NORTRIPTYLINE
     Indication: PANIC ATTACK
     Dosage: ?          QUANTITY:1 DF DOSAGE FORM;?
     Route: 048
     Dates: start: 20190601, end: 20190831
  3. DYAZIDE [Concomitant]
     Active Substance: HYDROCHLOROTHIAZIDE\TRIAMTERENE
  4. ARMOUR THYROID [Concomitant]
     Active Substance: THYROID, PORCINE
  5. MOTILI-T [Concomitant]
  6. ZYRTEC [Concomitant]
     Active Substance: CETIRIZINE HYDROCHLORIDE
  7. BONE STRENGTH [Concomitant]
  8. ATENOLOL. [Concomitant]
     Active Substance: ATENOLOL
  9. VITAMIN D3 [Concomitant]
     Active Substance: CHOLECALCIFEROL

REACTIONS (7)
  - Sinus disorder [None]
  - Product friable [None]
  - Oropharyngeal pain [None]
  - Abdominal pain upper [None]
  - Taste disorder [None]
  - Gastrooesophageal reflux disease [None]
  - Product substitution issue [None]

NARRATIVE: CASE EVENT DATE: 20190831
